FAERS Safety Report 24196769 (Version 5)
Quarter: 2025Q2

REPORT INFORMATION
  Report Type: Spontaneous
  Country: US (occurrence: US)
  Receive Date: 20240810
  Receipt Date: 20250514
  Transmission Date: 20250716
  Serious: Yes (Other)
  Sender: SANOFI AVENTIS
  Company Number: US-SA-SAC20240808000603

PATIENT
  Age: 21 Year
  Sex: Female

DRUGS (3)
  1. DUPIXENT [Suspect]
     Active Substance: DUPILUMAB
     Indication: Eczema
     Route: 058
     Dates: start: 20240724, end: 20240724
  2. DUPIXENT [Suspect]
     Active Substance: DUPILUMAB
     Indication: Dermatitis atopic
     Dosage: 300 MG, QOW
     Route: 058
     Dates: start: 20240807, end: 202501
  3. DUPIXENT [Suspect]
     Active Substance: DUPILUMAB
     Dosage: 300 MG, QOW
     Route: 058
     Dates: start: 202503, end: 20250313

REACTIONS (10)
  - Pneumonia [Unknown]
  - Productive cough [Recovered/Resolved]
  - Condition aggravated [Recovered/Resolved]
  - Sleep disorder due to a general medical condition [Recovered/Resolved]
  - Urinary incontinence [Recovered/Resolved]
  - Illness [Not Recovered/Not Resolved]
  - Vomiting [Recovered/Resolved]
  - Rebound eczema [Unknown]
  - Headache [Recovered/Resolved]
  - Dermatitis atopic [Unknown]

NARRATIVE: CASE EVENT DATE: 20240101
